FAERS Safety Report 4947528-3 (Version None)
Quarter: 2006Q1

REPORT INFORMATION
  Report Type: 
  Country: None (occurrence: None)
  Receive Date: 20060313
  Receipt Date: 20060228
  Transmission Date: 20060701
  Serious: Yes (Other)
  Sender: FDA-Public Use
  Company Number: 2006031131

PATIENT
  Age: 66 Year

DRUGS (2)
  1. LINEZOLID [Suspect]
     Indication: BACTERAEMIA
     Dosage: 600 MG (TWICE DAILY)
  2. RIFAMPICIN [Suspect]
     Indication: BACTERAEMIA

REACTIONS (7)
  - BLINDNESS [None]
  - HYPOAESTHESIA [None]
  - OPTIC DISC DISORDER [None]
  - OPTIC DISC HAEMORRHAGE [None]
  - PARAESTHESIA [None]
  - SCOTOMA [None]
  - VISUAL ACUITY REDUCED [None]
